FAERS Safety Report 6339718-2 (Version None)
Quarter: 2009Q3

REPORT INFORMATION
  Report Type: 
  Country: None (occurrence: None)
  Receive Date: 20090903
  Receipt Date: 20090824
  Transmission Date: 20100115
  Serious: Yes (Hospitalization)
  Sender: FDA-Public Use
  Company Number: BR-ELI_LILLY_AND_COMPANY-BR200905004771

PATIENT
  Sex: Female
  Weight: 76 kg

DRUGS (3)
  1. ZYPREXA [Suspect]
     Indication: FEAR
     Dosage: 2.5 MG, DAILY (1/D)
     Route: 048
     Dates: start: 20060501, end: 20090502
  2. ZYPREXA [Suspect]
     Dosage: UNK, UNKNOWN
     Route: 065
     Dates: start: 20090601
  3. LEXAPRO [Concomitant]
     Dosage: 10 MG, DAILY (1/D)
     Route: 048

REACTIONS (4)
  - ABDOMINAL PAIN [None]
  - BRONCHITIS [None]
  - GASTROINTESTINAL INFLAMMATION [None]
  - PRODUCTIVE COUGH [None]
